FAERS Safety Report 7503238-X (Version None)
Quarter: 2011Q2

REPORT INFORMATION
  Report Type: 
  Country: None (occurrence: None)
  Receive Date: 20110518
  Receipt Date: 20110502
  Transmission Date: 20111010
  Serious: Yes (Death)
  Sender: FDA-Public Use
  Company Number: 1-16017802

PATIENT
  Age: 62 Year
  Sex: Female
  Weight: 80.7403 kg

DRUGS (10)
  1. PREMARIN [Concomitant]
  2. VYTORIN [Concomitant]
  3. LISINOPRIL [Concomitant]
  4. FENTANYL-75 [Suspect]
  5. PLAVIX [Concomitant]
  6. TOPAMAX [Concomitant]
  7. ATENOLOL [Concomitant]
  8. TRICOR [Concomitant]
  9. FENTANYL-75 [Suspect]
     Indication: CHEST PAIN
     Dosage: TRANSDERMAL
     Route: 062
     Dates: start: 20080302, end: 20080304
  10. LORTAB [Concomitant]

REACTIONS (16)
  - INCORRECT DOSE ADMINISTERED [None]
  - CARDIAC ARREST [None]
  - SUDDEN DEATH [None]
  - MYDRIASIS [None]
  - CYANOSIS [None]
  - PRODUCT QUALITY ISSUE [None]
  - OESOPHAGEAL HYPOMOTILITY [None]
  - IMPAIRED WORK ABILITY [None]
  - ANHEDONIA [None]
  - ASPARTATE AMINOTRANSFERASE INCREASED [None]
  - SNORING [None]
  - PAIN [None]
  - ARRHYTHMIA [None]
  - SOMNOLENCE [None]
  - RESPIRATORY RATE DECREASED [None]
  - ANXIETY [None]
